FAERS Safety Report 10510966 (Version 3)
Quarter: 2014Q4

REPORT INFORMATION
  Report Type: Spontaneous
  Country: US (occurrence: US)
  Receive Date: 20141010
  Receipt Date: 20141218
  Transmission Date: 20150528
  Serious: Yes (Hospitalization, Other)
  Sender: FDA-Public Use
  Company Number: US-BAYER-2014-146270

PATIENT
  Age: 44 Year
  Sex: Female

DRUGS (3)
  1. LEVAQUIN [Suspect]
     Active Substance: LEVOFLOXACIN
     Indication: PLEURAL EFFUSION
     Dosage: UNK
     Dates: start: 20101213
  2. CIPRO [Suspect]
     Active Substance: CIPROFLOXACIN HYDROCHLORIDE
     Indication: URINARY TRACT INFECTION
     Dosage: UNK
     Dates: start: 20101114
  3. ZITHROMAX [Suspect]
     Active Substance: AZITHROMYCIN DIHYDRATE
     Indication: CHEST PAIN
     Dosage: UNK
     Dates: start: 20101208

REACTIONS (30)
  - Muscular weakness [None]
  - Chest pain [None]
  - Acute respiratory distress syndrome [None]
  - Neuropathy peripheral [None]
  - Spinal pain [None]
  - Gait disturbance [None]
  - Nerve injury [None]
  - Pleurisy [None]
  - Spinal pain [None]
  - Acute respiratory failure [None]
  - Pleural effusion [None]
  - Pallor [None]
  - Burning sensation [None]
  - Injury [None]
  - Septic shock [None]
  - Trigeminal neuralgia [None]
  - Faecal incontinence [None]
  - Pain in extremity [None]
  - Lung infection [None]
  - Pneumothorax [None]
  - Hypoxia [None]
  - Diplopia [None]
  - Dyspnoea [None]
  - Sepsis [None]
  - Shock [None]
  - Tremor [None]
  - Urinary incontinence [None]
  - Blindness transient [None]
  - Vision blurred [None]
  - Pain [None]

NARRATIVE: CASE EVENT DATE: 201012
